FAERS Safety Report 9751665 (Version 2)
Quarter: 2013Q4

REPORT INFORMATION
  Report Type: Spontaneous
  Country: DE (occurrence: DE)
  Receive Date: 20131213
  Receipt Date: 20131213
  Transmission Date: 20140711
  Serious: Yes (Other)
  Sender: FDA-Public Use
  Company Number: DE-ROCHE-1304936

PATIENT
  Age: 62 Year
  Sex: Female
  Weight: 70 kg

DRUGS (9)
  1. PERJETA [Suspect]
     Indication: BREAST CANCER METASTATIC
     Route: 042
     Dates: start: 20131016, end: 20131127
  2. HERCEPTIN [Concomitant]
     Indication: BREAST CANCER METASTATIC
     Route: 065
  3. DOCETAXEL [Concomitant]
     Indication: BREAST CANCER METASTATIC
     Route: 065
  4. DEXAMETHASON [Concomitant]
     Indication: PREMEDICATION
     Dosage: 2 X 8 MG
     Route: 048
     Dates: start: 20131105, end: 20131105
  5. DEXAMETHASON [Concomitant]
     Route: 042
     Dates: start: 20131106, end: 20131106
  6. DEXAMETHASON [Concomitant]
     Route: 048
     Dates: start: 20131126, end: 20131126
  7. DEXAMETHASON [Concomitant]
     Route: 042
     Dates: start: 20131127, end: 20131127
  8. KEVATRIL [Concomitant]
     Indication: PREMEDICATION
     Route: 042
     Dates: start: 20131106, end: 20131106
  9. KEVATRIL [Concomitant]
     Route: 042
     Dates: start: 20131127, end: 20131127

REACTIONS (2)
  - Hypersensitivity [Recovered/Resolved]
  - Shock [Recovered/Resolved]
